FAERS Safety Report 10527134 (Version 1)
Quarter: 2014Q4

REPORT INFORMATION
  Report Type: Spontaneous
  Country: US (occurrence: US)
  Receive Date: 20141020
  Receipt Date: 20141020
  Transmission Date: 20150528
  Serious: Yes (Other)
  Sender: FDA-Public Use
  Company Number: US-AUROBINDO-AUR-APL-2014-11071

PATIENT
  Sex: Female

DRUGS (1)
  1. ALENDRONATE SODIUM TABLETS [Suspect]
     Active Substance: ALENDRONATE SODIUM
     Indication: OSTEOPOROSIS
     Route: 048

REACTIONS (7)
  - Pain in extremity [Unknown]
  - Constipation [Unknown]
  - Myalgia [Unknown]
  - Abdominal pain upper [Unknown]
  - Restless legs syndrome [Unknown]
  - Bone pain [Unknown]
  - Arthralgia [Unknown]
